FAERS Safety Report 5089599-2 (Version None)
Quarter: 2006Q3

REPORT INFORMATION
  Report Type: 
  Country: None (occurrence: None)
  Receive Date: 20060822
  Receipt Date: 20060731
  Transmission Date: 20061208
  Serious: Yes (Hospitalization)
  Sender: FDA-Public Use
  Company Number: US200606000973

PATIENT
  Age: 52 Year
  Sex: Female
  Weight: 74.8 kg

DRUGS (2)
  1. ZYPREXA [Suspect]
     Dosage: 30
     Dates: start: 20010101
  2. PAXIL [Concomitant]

REACTIONS (3)
  - CARDIAC OPERATION [None]
  - DIABETES MELLITUS [None]
  - PRESCRIBED OVERDOSE [None]
